FAERS Safety Report 22595187 (Version 5)
Quarter: 2023Q4

REPORT INFORMATION
  Report Type: Report from Study
  Country: VN (occurrence: None)
  Receive Date: 20230613
  Receipt Date: 20231026
  Transmission Date: 20240109
  Serious: Yes (Hospitalization)
  Sender: FDA-Public Use
  Company Number: VN-ROCHE-3365714

PATIENT
  Age: 71 Year
  Sex: Male
  Weight: 50 kg

DRUGS (8)
  1. ATEZOLIZUMAB [Suspect]
     Active Substance: ATEZOLIZUMAB
     Indication: Non-small cell lung cancer
     Dosage: DOSE LAST STUDY DRUG ADMIN PRIOR AE AND SAE WAS 1680 MG ON 11/APR/2023
     Route: 041
     Dates: start: 20230118
  2. NATRI CLORID [Concomitant]
     Dosage: 250 OTHER
     Route: 042
     Dates: start: 20230411, end: 20230411
  3. ESOMEPRAZOLE [Concomitant]
     Active Substance: ESOMEPRAZOLE
     Route: 048
     Dates: start: 20230607, end: 20230613
  4. LACTATED RINGERS SOLUTION [Concomitant]
     Active Substance: CALCIUM CHLORIDE\POTASSIUM CHLORIDE\SODIUM CHLORIDE\SODIUM LACTATE
     Dosage: DOSE: 500 OTHER
     Route: 042
     Dates: start: 20230607, end: 20230612
  5. METHYLPREDNISOLONE [Concomitant]
     Active Substance: METHYLPREDNISOLONE
     Route: 042
     Dates: start: 20230607, end: 20230607
  6. METHYLPREDNISOLONE [Concomitant]
     Active Substance: METHYLPREDNISOLONE
     Route: 042
     Dates: start: 20230608, end: 20230612
  7. CEFOTAXIME [Concomitant]
     Active Substance: CEFOTAXIME SODIUM
     Route: 042
     Dates: start: 20230607, end: 20230607
  8. CEFOTAXIME [Concomitant]
     Active Substance: CEFOTAXIME SODIUM
     Route: 042
     Dates: start: 20230608, end: 20230612

REACTIONS (1)
  - Pneumonia [Recovered/Resolved]

NARRATIVE: CASE EVENT DATE: 20230509
